FAERS Safety Report 6537514-4 (Version None)
Quarter: 2010Q1

REPORT INFORMATION
  Report Type: 
  Country: None (occurrence: None)
  Receive Date: 20100114
  Receipt Date: 20100106
  Transmission Date: 20100710
  Serious: Yes (Hospitalization, Other)
  Sender: FDA-Public Use
  Company Number: PHHO2009JP15061

PATIENT
  Sex: Male
  Weight: 41 kg

DRUGS (15)
  1. CERTICAN [Suspect]
     Indication: RENAL TRANSPLANT
     Dosage: 1 MG
     Route: 048
     Dates: start: 20090701
  2. CERTICAN [Suspect]
     Dosage: NO TREATMENT
  3. CERTICAN [Suspect]
     Dosage: 1MG
     Route: 048
  4. NEORAL [Suspect]
     Indication: RENAL TRANSPLANT
     Dosage: 40MG
     Route: 048
     Dates: start: 20090924
  5. MEDROL [Concomitant]
     Indication: RENAL TRANSPLANT
     Dosage: 4 MG
     Route: 048
     Dates: start: 20081024
  6. NEUER [Concomitant]
     Indication: GASTRITIS PROPHYLAXIS
  7. TAKEPRON [Concomitant]
     Indication: GASTRITIS PROPHYLAXIS
  8. NORVASC [Concomitant]
     Indication: RENAL HYPERTENSION
  9. BLOPRESS [Concomitant]
     Indication: RENAL HYPERTENSION
  10. MAINTATE [Concomitant]
     Indication: RENAL HYPERTENSION
  11. ISODINE [Concomitant]
     Indication: INFECTION PROPHYLAXIS
  12. MEVALOTIN [Concomitant]
     Indication: HYPERCHOLESTEROLAEMIA
  13. URINORM [Concomitant]
     Indication: HYPERURICAEMIA
  14. CARDENALIN [Concomitant]
     Indication: RENAL HYPERTENSION
  15. SPIRIVA [Concomitant]
     Indication: EMPHYSEMA

REACTIONS (4)
  - CHEST X-RAY ABNORMAL [None]
  - NEPHROPATHY [None]
  - PNEUMONIA [None]
  - PYREXIA [None]
